FAERS Safety Report 8053454-6 (Version None)
Quarter: 2012Q1

REPORT INFORMATION
  Report Type: 
  Country: None (occurrence: None)
  Receive Date: 20120118
  Receipt Date: 20120109
  Transmission Date: 20120608
  Serious: Yes (Hospitalization)
  Sender: FDA-Public Use
  Company Number: FR-VIIV HEALTHCARE LIMITED-B0774239A

PATIENT
  Sex: Female
  Weight: 3 kg

DRUGS (1)
  1. RETROVIR [Suspect]
     Indication: PROPHYLAXIS AGAINST HIV INFECTION
     Dosage: 2MGK SEE DOSAGE TEXT
     Route: 048
     Dates: start: 20110917, end: 20111004

REACTIONS (1)
  - THROMBOCYTOSIS [None]
